FAERS Safety Report 10762128 (Version 1)
Quarter: 2015Q1

REPORT INFORMATION
  Report Type: Spontaneous
  Country: GB (occurrence: GB)
  Receive Date: 20150204
  Receipt Date: 20150204
  Transmission Date: 20150721
  Serious: Yes (Death, Congenital Anomaly, Other)
  Sender: FDA-Public Use
  Company Number: GB-ASTRAZENECA-2014SE88237

PATIENT
  Age: 62 Year
  Sex: Female

DRUGS (8)
  1. GLICLAZIDE [Concomitant]
     Active Substance: GLICLAZIDE
  2. METFORMIN [Concomitant]
     Active Substance: METFORMIN HYDROCHLORIDE
  3. DAPAGLIFLOZIN [Suspect]
     Active Substance: DAPAGLIFLOZIN
     Route: 048
  4. SAXAGLIPTIN [Concomitant]
     Active Substance: SAXAGLIPTIN
  5. ASPIRIN. [Concomitant]
     Active Substance: ASPIRIN
  6. ATORVASTATIN [Concomitant]
     Active Substance: ATORVASTATIN
  7. RAMIPRIL. [Concomitant]
     Active Substance: RAMIPRIL
  8. BISOPROLOL [Concomitant]
     Active Substance: BISOPROLOL

REACTIONS (3)
  - Diabetes mellitus inadequate control [Recovered/Resolved]
  - Sweat gland disorder [Fatal]
  - Glucose urine present [Fatal]

NARRATIVE: CASE EVENT DATE: 20141025
